FAERS Safety Report 6574549-X (Version None)
Quarter: 2010Q1

REPORT INFORMATION
  Report Type: 
  Country: None (occurrence: None)
  Receive Date: 20100209
  Receipt Date: 20090818
  Transmission Date: 20100710
  Serious: No
  Sender: FDA-Public Use
  Company Number: A0802828A

PATIENT
  Age: 54 Year
  Sex: Female

DRUGS (4)
  1. PAXIL [Suspect]
     Indication: DEPRESSION
     Dosage: 80MG PER DAY
     Route: 048
     Dates: start: 20000101, end: 20090701
  2. BUSPAR [Concomitant]
  3. XANAX [Concomitant]
  4. AMBIEN [Concomitant]

REACTIONS (6)
  - ANGER [None]
  - DISORIENTATION [None]
  - DRUG INEFFECTIVE [None]
  - FEELING ABNORMAL [None]
  - NIGHTMARE [None]
  - WEIGHT DECREASED [None]
